FAERS Safety Report 5878635-9 (Version None)
Quarter: 2008Q3

REPORT INFORMATION
  Report Type: 
  Country: None (occurrence: None)
  Receive Date: 20080909
  Receipt Date: 20080828
  Transmission Date: 20090109
  Serious: No
  Sender: FDA-Public Use
  Company Number: 2008-182779-NL

PATIENT
  Age: 32 Year
  Sex: Female

DRUGS (2)
  1. NUVARING [Suspect]
     Indication: CONTRACEPTION
     Dosage: DF VAGINAL;  {  YEAR
     Route: 067
     Dates: start: 20080101, end: 20080828
  2. GLATIRAMER ACETATE [Concomitant]

REACTIONS (3)
  - APHASIA [None]
  - NAUSEA [None]
  - VERTIGO [None]
